FAERS Safety Report 18856576 (Version 41)
Quarter: 2025Q2

REPORT INFORMATION
  Report Type: Report from Study
  Country: CO (occurrence: CO)
  Receive Date: 20210207
  Receipt Date: 20250528
  Transmission Date: 20250716
  Serious: Yes (Other)
  Sender: TAKEDA
  Company Number: CO-TAKEDA-CO202025530

PATIENT
  Age: 57 Year
  Sex: Female
  Weight: 70 kg

DRUGS (14)
  1. ICATIBANT [Suspect]
     Active Substance: ICATIBANT ACETATE
     Indication: Hereditary angioedema
  2. ICATIBANT [Suspect]
     Active Substance: ICATIBANT ACETATE
  3. ICATIBANT [Suspect]
     Active Substance: ICATIBANT ACETATE
     Dates: start: 20200802, end: 20200802
  4. ICATIBANT [Suspect]
     Active Substance: ICATIBANT ACETATE
     Dates: start: 20200807, end: 20200807
  5. ICATIBANT [Suspect]
     Active Substance: ICATIBANT ACETATE
     Dates: start: 20200921, end: 20200921
  6. ICATIBANT [Suspect]
     Active Substance: ICATIBANT ACETATE
  7. ICATIBANT [Suspect]
     Active Substance: ICATIBANT ACETATE
  8. ICATIBANT [Suspect]
     Active Substance: ICATIBANT ACETATE
  9. ICATIBANT [Suspect]
     Active Substance: ICATIBANT ACETATE
  10. ICATIBANT [Suspect]
     Active Substance: ICATIBANT ACETATE
     Dosage: 1 DOSAGE FORM, Q6HR
  11. ICATIBANT [Suspect]
     Active Substance: ICATIBANT ACETATE
  12. DANAZOL [Concomitant]
     Active Substance: DANAZOL
     Dosage: 1 DOSAGE FORM, QOD
  13. DANAZOL [Concomitant]
     Active Substance: DANAZOL
     Dosage: 200 MILLIGRAM, QOD
  14. DANAZOL [Concomitant]
     Active Substance: DANAZOL
     Dosage: 200 MILLIGRAM, QD

REACTIONS (11)
  - Upper limb fracture [Unknown]
  - Fall [Unknown]
  - Weight decreased [Unknown]
  - Weight increased [Unknown]
  - Dyslipidaemia [Not Recovered/Not Resolved]
  - Procedural pain [Recovering/Resolving]
  - Post procedural discomfort [Recovering/Resolving]
  - Blood cholesterol increased [Recovering/Resolving]
  - Blood triglycerides increased [Recovering/Resolving]
  - Body height decreased [Unknown]
  - Urticaria [Recovered/Resolved]

NARRATIVE: CASE EVENT DATE: 20210124
